FAERS Safety Report 5735716-8 (Version None)
Quarter: 2008Q2

REPORT INFORMATION
  Report Type: 
  Country: None (occurrence: None)
  Receive Date: 20080513
  Receipt Date: 20080501
  Transmission Date: 20081010
  Serious: Yes (Other)
  Sender: FDA-Public Use
  Company Number: GB-RANBAXY-2008RR-14902

PATIENT

DRUGS (15)
  1. METFORMIN HCL [Suspect]
     Dosage: 850 MG, TID
     Dates: start: 20080412, end: 20080413
  2. METFORMIN HCL [Suspect]
     Dosage: UNK
     Dates: start: 20080414
  3. ACTOS [Suspect]
     Dosage: 45 MG, QD
     Dates: start: 20080418
  4. HUMAN ACTRAPIN INSULIN [Suspect]
     Dosage: UNK
     Dates: start: 20080414, end: 20080417
  5. AMIODARONE HCL [Concomitant]
     Indication: ATRIAL FIBRILLATION
  6. ASPIRIN [Concomitant]
  7. ATORVASTATIN [Concomitant]
  8. BECLOMETHASONE DIPROPIONATE [Concomitant]
  9. CEFTRIAXONE [Concomitant]
     Dosage: 2 G, UNK
     Route: 042
  10. ENOXAPARIN SODIUM [Concomitant]
     Dosage: 20 MG, QD
  11. ESOMEPRAZOLE [Concomitant]
  12. LISINOPRIL [Concomitant]
  13. METRONIDAZOLE HCL [Concomitant]
     Route: 042
  14. ALBUTEROL [Concomitant]
  15. SILDENAFIL CITRATE [Concomitant]

REACTIONS (3)
  - LOCAL SWELLING [None]
  - OEDEMA PERIPHERAL [None]
  - PITTING OEDEMA [None]
